FAERS Safety Report 7250332-7 (Version None)
Quarter: 2011Q1

REPORT INFORMATION
  Report Type: 
  Country: None (occurrence: None)
  Receive Date: 20110118
  Receipt Date: 20110104
  Transmission Date: 20110831
  Serious: Yes (Hospitalization)
  Sender: FDA-Public Use
  Company Number: 1000018126

PATIENT
  Age: 14 Month
  Sex: Female

DRUGS (1)
  1. ESCITALOPRAM [Suspect]
     Dosage: (10 MG,ONCE), ORAL
     Route: 048
     Dates: start: 20110104, end: 20110104

REACTIONS (1)
  - ACCIDENTAL DRUG INTAKE BY CHILD [None]
